FAERS Safety Report 25073651 (Version 1)
Quarter: 2025Q1

REPORT INFORMATION
  Report Type: Report from Study
  Country: US (occurrence: US)
  Receive Date: 20250313
  Receipt Date: 20250313
  Transmission Date: 20250408
  Serious: No
  Sender: ACADIA PHARMACEUTICALS
  Company Number: US-ACADIA PHARMACEUTICALS INC.-ACA-2025-TRF-002640

PATIENT
  Age: 3 Year
  Sex: Female

DRUGS (3)
  1. DAYBUE [Suspect]
     Active Substance: TROFINETIDE
     Indication: Product used for unknown indication
     Route: 065
     Dates: start: 202305, end: 202306
  2. DAYBUE [Suspect]
     Active Substance: TROFINETIDE
     Route: 065
     Dates: start: 202305, end: 202306
  3. DAYBUE [Suspect]
     Active Substance: TROFINETIDE
     Route: 065
     Dates: start: 202405, end: 202405

REACTIONS (4)
  - Diarrhoea [Recovered/Resolved]
  - Vomiting [Recovered/Resolved]
  - Weight decreased [Recovered/Resolved]
  - Underdose [Unknown]

NARRATIVE: CASE EVENT DATE: 20230601
